FAERS Safety Report 7323574-X (Version None)
Quarter: 2011Q1

REPORT INFORMATION
  Report Type: 
  Country: None (occurrence: None)
  Receive Date: 20110301
  Receipt Date: 20110221
  Transmission Date: 20110831
  Serious: Yes (Other)
  Sender: FDA-Public Use
  Company Number: GB-ROCHE-760894

PATIENT

DRUGS (1)
  1. CAPECITABINE [Suspect]
     Dosage: GIVEN CONTINUOUSLY 7 DAYS A WEEK
     Route: 048

REACTIONS (11)
  - DIARRHOEA [None]
  - BLISTER [None]
  - MUCOSAL ULCERATION [None]
  - SKIN FIBROSIS [None]
  - PALMAR-PLANTAR ERYTHRODYSAESTHESIA SYNDROME [None]
  - LARYNGEAL OEDEMA [None]
  - OSTEORADIONECROSIS [None]
  - MUCOSAL INFLAMMATION [None]
  - MYOCARDIAL ISCHAEMIA [None]
  - DYSPHAGIA [None]
  - SKIN REACTION [None]
